FAERS Safety Report 6092825-4 (Version None)
Quarter: 2009Q1

REPORT INFORMATION
  Report Type: 
  Country: None (occurrence: None)
  Receive Date: 20090225
  Receipt Date: 20090210
  Transmission Date: 20090719
  Serious: Yes (Other)
  Sender: FDA-Public Use
  Company Number: FR-GENENTECH-220725

PATIENT
  Sex: Male
  Weight: 86 kg

DRUGS (7)
  1. RITUXIMAB [Suspect]
     Indication: B-CELL LYMPHOMA
     Dosage: 152.5 MG, UNK
     Route: 042
     Dates: start: 20051118, end: 20051208
  2. CYCLOPHOSPHAMIDE [Suspect]
     Indication: B-CELL LYMPHOMA
     Dosage: 1148 MG, UNK
     Route: 042
     Dates: start: 20051118, end: 20051208
  3. DOXORUBICIN HCL [Suspect]
     Indication: B-CELL LYMPHOMA
     Dosage: 75 MG, UNK
     Route: 042
     Dates: start: 20051118, end: 20051208
  4. PREDNISONE [Suspect]
     Indication: B-CELL LYMPHOMA
     Dosage: 80 MG, UNK
     Route: 042
     Dates: start: 20051118, end: 20051212
  5. VINCRISTINE [Suspect]
     Indication: B-CELL LYMPHOMA
     Dosage: 2 MG, UNK
     Route: 042
     Dates: start: 20051118, end: 20051212
  6. PARACETAMOL [Suspect]
     Indication: B-CELL LYMPHOMA
     Dosage: 500 MG, UNK
     Route: 042
     Dates: start: 20051118, end: 20051208
  7. ZOPHREN [Suspect]
     Indication: B-CELL LYMPHOMA
     Dosage: 8 MG, UNK
     Route: 042
     Dates: start: 20051118, end: 20051208

REACTIONS (1)
  - DRUG HYPERSENSITIVITY [None]
